FAERS Safety Report 6556256-2 (Version None)
Quarter: 2010Q1

REPORT INFORMATION
  Report Type: 
  Country: None (occurrence: None)
  Receive Date: 20100128
  Receipt Date: 20090910
  Transmission Date: 20100710
  Serious: Yes (Other)
  Sender: FDA-Public Use
  Company Number: US-TEVA-208852USA

PATIENT
  Age: 32 Year
  Sex: Male

DRUGS (3)
  1. COPAXONE [Suspect]
     Indication: MULTIPLE SCLEROSIS
     Route: 058
     Dates: start: 20090101, end: 20090827
  2. DIPHENHYDRAMINE HYDROCHLORIDE [Concomitant]
     Indication: HYPERSENSITIVITY
  3. MULTIVITAMIN                       /00831701/ [Concomitant]

REACTIONS (3)
  - ANGIOEDEMA [None]
  - SKIN REACTION [None]
  - URTICARIA [None]
